FAERS Safety Report 7321939-3 (Version None)
Quarter: 2011Q1

REPORT INFORMATION
  Report Type: 
  Country: None (occurrence: None)
  Receive Date: 20110228
  Receipt Date: 20110224
  Transmission Date: 20110831
  Serious: No
  Sender: FDA-Public Use
  Company Number: US-PFIZER INC-2011028382

PATIENT
  Sex: Male
  Weight: 79.365 kg

DRUGS (5)
  1. ADVIL PM [Suspect]
     Indication: PAIN
  2. ALCOHOL [Suspect]
     Indication: PRODUCT USED FOR UNKNOWN INDICATION
     Dosage: UNK
     Route: 065
  3. ADVIL PM [Suspect]
     Indication: BACK PAIN
     Dosage: UNK
     Route: 048
     Dates: start: 20110201, end: 20110207
  4. TRAMADOL [Concomitant]
     Dosage: UNK
  5. ADVIL PM [Suspect]
     Indication: MUSCULOSKELETAL DISCOMFORT
     Dosage: UNK
     Dates: start: 20110201, end: 20110201

REACTIONS (4)
  - DIZZINESS [None]
  - DISORIENTATION [None]
  - PRODUCT LABEL ISSUE [None]
  - MALAISE [None]
